FAERS Safety Report 19756786 (Version 2)
Quarter: 2022Q1

REPORT INFORMATION
  Report Type: Report from Study
  Country: BR (occurrence: BR)
  Receive Date: 20210827
  Receipt Date: 20220307
  Transmission Date: 20220424
  Serious: Yes (Other)
  Sender: FDA-Public Use
  Company Number: BR-TAKEDA-BR201941127

PATIENT
  Sex: Male
  Weight: 32 kg

DRUGS (3)
  1. HEMO-8R [Suspect]
     Active Substance: ANTIHEMOPHILIC FACTOR, HUMAN RECOMBINANT
     Indication: Factor VIII deficiency
     Dosage: 1000 INTERNATIONAL UNIT, 3/WEEK
     Route: 042
  2. HEMO-8R [Suspect]
     Active Substance: ANTIHEMOPHILIC FACTOR, HUMAN RECOMBINANT
     Dosage: 1250 INTERNATIONAL UNIT, 3/WEEK
     Route: 042
     Dates: start: 20150113
  3. HEMO-8R [Suspect]
     Active Substance: ANTIHEMOPHILIC FACTOR, HUMAN RECOMBINANT
     Dosage: 1250 INTERNATIONAL UNIT, 3/WEEK
     Route: 042
     Dates: start: 20151001

REACTIONS (11)
  - Haemarthrosis [Unknown]
  - Contusion [Not Recovered/Not Resolved]
  - Incorrect dose administered [Unknown]
  - Weight increased [Unknown]
  - Stress [Unknown]
  - Pain [Recovered/Resolved]
  - Sleep disorder [Unknown]
  - Ligament sprain [Unknown]
  - Hyperphagia [Unknown]
  - Joint injury [Unknown]
  - Inappropriate schedule of product administration [Unknown]
